FAERS Safety Report 17263054 (Version 1)
Quarter: 2020Q1

REPORT INFORMATION
  Report Type: Report from Study
  Country: AR (occurrence: AR)
  Receive Date: 20200113
  Receipt Date: 20200113
  Transmission Date: 20200409
  Serious: Yes (Other)
  Sender: FDA-Public Use
  Company Number: AR-BRISTOL-MYERS SQUIBB COMPANY-BMS-2020-002245

PATIENT
  Sex: Female

DRUGS (3)
  1. APIXABAN [Suspect]
     Active Substance: APIXABAN
     Indication: PRODUCT USED FOR UNKNOWN INDICATION
     Dosage: 10 MILLIGRAM
     Route: 065
     Dates: start: 20181012
  2. APIXABAN [Suspect]
     Active Substance: APIXABAN
     Indication: PRODUCT USED FOR UNKNOWN INDICATION
     Dosage: 5 MILLIGRAM
     Route: 065
  3. PREGABALIN. [Suspect]
     Active Substance: PREGABALIN
     Indication: SCIATICA
     Dosage: UNK
     Route: 065
     Dates: start: 20191229

REACTIONS (8)
  - Oedema peripheral [Unknown]
  - Thrombosis [Unknown]
  - Drug ineffective [Unknown]
  - Peripheral swelling [Unknown]
  - Pelvic fracture [Recovering/Resolving]
  - Sciatica [Unknown]
  - Depression [Unknown]
  - Hypersomnia [Unknown]
